FAERS Safety Report 14913202 (Version 1)
Quarter: 2018Q2

REPORT INFORMATION
  Report Type: Spontaneous
  Country: US (occurrence: US)
  Receive Date: 20180518
  Receipt Date: 20180518
  Transmission Date: 20180711
  Serious: Yes (Hospitalization)
  Sender: FDA-Public Use
  Company Number: US-CHIESI USA INC.-US-2018CHI000111

PATIENT

DRUGS (2)
  1. BETHKIS [Suspect]
     Active Substance: TOBRAMYCIN
     Indication: ASTHMA
     Dosage: 4 ML, BID
     Route: 055
     Dates: start: 20150924
  2. BETHKIS [Suspect]
     Active Substance: TOBRAMYCIN
     Indication: OFF LABEL USE

REACTIONS (3)
  - Off label use [Unknown]
  - Respiratory tract infection [Unknown]
  - Drug dose omission [Unknown]

NARRATIVE: CASE EVENT DATE: 20150924
